FAERS Safety Report 6536189-8 (Version None)
Quarter: 2010Q1

REPORT INFORMATION
  Report Type: 
  Country: None (occurrence: None)
  Receive Date: 20100113
  Receipt Date: 20091027
  Transmission Date: 20100710
  Serious: No
  Sender: FDA-Public Use
  Company Number: US-ALLERGAN-0914905US

PATIENT
  Age: 51 Year
  Sex: Female

DRUGS (3)
  1. LATISSE [Suspect]
     Indication: HYPOTRICHOSIS
     Dosage: UNK
     Route: 061
  2. TAMOXIFEN CITRATE [Concomitant]
  3. NEURONTIN [Concomitant]

REACTIONS (2)
  - DRUG ADMINISTERED AT INAPPROPRIATE SITE [None]
  - MADAROSIS [None]
